FAERS Safety Report 12684827 (Version 1)
Quarter: 2016Q3

REPORT INFORMATION
  Report Type: Spontaneous
  Country: FR (occurrence: FR)
  Receive Date: 20160825
  Receipt Date: 20160825
  Transmission Date: 20161109
  Serious: Yes (Hospitalization, Other)
  Sender: FDA-Public Use
  Company Number: FR-GLAXOSMITHKLINE-FR2016GSK122691

PATIENT
  Age: 59 Year
  Sex: Male
  Weight: 72 kg

DRUGS (16)
  1. ENDOXAN [Suspect]
     Active Substance: CYCLOPHOSPHAMIDE
     Dosage: UNK
     Route: 042
     Dates: start: 20160211
  2. ONDANSETRON [Suspect]
     Active Substance: ONDANSETRON
     Dosage: UNK
     Route: 042
     Dates: start: 20160211
  3. MESNA. [Suspect]
     Active Substance: MESNA
     Dosage: UNK
     Route: 042
     Dates: start: 20160211
  4. BACTRIM [Suspect]
     Active Substance: SULFAMETHOXAZOLE\TRIMETHOPRIM
     Dosage: UNK
     Dates: start: 201602
  5. UROMITEXAN [Suspect]
     Active Substance: MESNA
     Dosage: UNK
     Route: 048
     Dates: start: 20160211
  6. PARACETAMOL [Suspect]
     Active Substance: ACETAMINOPHEN
     Dosage: UNK
     Route: 042
     Dates: start: 20160212
  7. ZELITREX [Suspect]
     Active Substance: VALACYCLOVIR HYDROCHLORIDE
     Indication: INFECTION PROPHYLAXIS
     Dosage: UNK
     Dates: start: 201602
  8. POLARAMINE [Suspect]
     Active Substance: DEXCHLORPHENIRAMINE MALEATE
     Dosage: UNK
     Route: 042
     Dates: start: 20160211
  9. MABTHERA [Suspect]
     Active Substance: RITUXIMAB
     Dosage: UNK
     Route: 042
     Dates: start: 20160211
  10. BLEOMYCIN [Suspect]
     Active Substance: BLEOMYCIN SULFATE
     Dosage: UNK
     Route: 042
     Dates: start: 20160211
  11. ELDISINE [Suspect]
     Active Substance: VINDESINE SULFATE
     Dosage: UNK
     Route: 042
     Dates: start: 20160211
  12. LEDERFOLINE [Suspect]
     Active Substance: LEUCOVORIN CALCIUM
     Dosage: UNK
     Dates: start: 201602
  13. METHYLPREDNISOLONE. [Suspect]
     Active Substance: METHYLPREDNISOLONE
     Dosage: UNK
     Route: 042
     Dates: start: 20160211
  14. DOXORUBICINE [Suspect]
     Active Substance: DOXORUBICIN
     Dosage: 150 MG, CYC
     Route: 042
     Dates: start: 20160211
  15. METHOTREXATE. [Suspect]
     Active Substance: METHOTREXATE
     Dosage: UNK
     Route: 037
     Dates: start: 20160211
  16. ZYLORIC [Suspect]
     Active Substance: ALLOPURINOL
     Dosage: UNK
     Dates: start: 201602

REACTIONS (3)
  - Weight decreased [Recovered/Resolved]
  - Febrile neutropenia [Recovered/Resolved]
  - Stomatitis [Recovered/Resolved]

NARRATIVE: CASE EVENT DATE: 20160219
